FAERS Safety Report 8444188-4 (Version None)
Quarter: 2012Q2

REPORT INFORMATION
  Report Type: 
  Country: None (occurrence: None)
  Receive Date: 20120618
  Receipt Date: 20120530
  Transmission Date: 20120825
  Serious: No
  Sender: FDA-Public Use
  Company Number: US-ASTRAZENECA-2011SE41555

PATIENT
  Age: 64 Year
  Sex: Female

DRUGS (4)
  1. PEPCID [Concomitant]
  2. LEVOTHYROXINE SODIUM [Concomitant]
     Indication: THYROID DISORDER
  3. GLIPIZIDE [Concomitant]
     Indication: DIABETES MELLITUS
  4. NEXIUM [Suspect]
     Indication: GASTROOESOPHAGEAL REFLUX DISEASE
     Route: 048
     Dates: start: 20030301, end: 20110101

REACTIONS (6)
  - ARTHRITIS [None]
  - FRACTURE [None]
  - DIABETES MELLITUS [None]
  - PAIN [None]
  - DEPRESSION [None]
  - EMOTIONAL DISTRESS [None]
